FAERS Safety Report 26177792 (Version 1)
Quarter: 2025Q4

REPORT INFORMATION
  Report Type: Spontaneous
  Country: CA (occurrence: None)
  Receive Date: 20251219
  Receipt Date: 20251219
  Transmission Date: 20260117
  Serious: Yes (Hospitalization, Other)
  Sender: APOTEX
  Company Number: CA-APOTEX-2025AP034458

PATIENT
  Age: 60 Year
  Sex: Male

DRUGS (1)
  1. ACETAMINOPHEN [Suspect]
     Active Substance: ACETAMINOPHEN
     Indication: Product used for unknown indication
     Dosage: UNK
     Route: 065

REACTIONS (7)
  - Overdose [Recovered/Resolved]
  - Mental status changes [Recovered/Resolved]
  - Vasogenic cerebral oedema [Recovered/Resolved]
  - Haemorrhage [Recovered/Resolved]
  - Aspergillus infection [Recovered/Resolved]
  - Brain abscess [Recovered/Resolved]
  - Acute hepatic failure [Recovered/Resolved]
